FAERS Safety Report 4488769-1 (Version None)
Quarter: 2004Q4

REPORT INFORMATION
  Report Type: 
  Country: None (occurrence: None)
  Receive Date: 20041029
  Receipt Date: 20041019
  Transmission Date: 20050328
  Serious: Yes (Hospitalization, Disabling, Other)
  Sender: FDA-Public Use
  Company Number: US-JNJFOC-20041006042

PATIENT
  Sex: Female
  Weight: 56.7 kg

DRUGS (3)
  1. REMICADE [Suspect]
     Indication: CROHN'S DISEASE
     Route: 042
  2. ETANERCEPT [Suspect]
     Indication: CROHN'S DISEASE
  3. FLAGYL [Concomitant]

REACTIONS (4)
  - ENDOMETRIOSIS [None]
  - INFERTILITY FEMALE [None]
  - OVARIAN MASS [None]
  - VASCULITIS [None]
